FAERS Safety Report 11711226 (Version 1)
Quarter: 2015Q4

REPORT INFORMATION
  Report Type: Spontaneous
  Country: US (occurrence: US)
  Receive Date: 20151104
  Receipt Date: 20151104
  Transmission Date: 20160304
  Serious: No
  Sender: FDA-Public Use
  Company Number: US-ELI_LILLY_AND_COMPANY-US201105004072

PATIENT
  Age: 58 Year
  Sex: Female

DRUGS (1)
  1. FORTEO [Suspect]
     Active Substance: TERIPARATIDE
     Indication: OSTEOPOROSIS
     Dosage: 20 UG, QD
     Dates: start: 201104

REACTIONS (6)
  - Dizziness [Unknown]
  - Injection site swelling [Unknown]
  - Feeling abnormal [Unknown]
  - Injection site pain [Unknown]
  - Fear [Unknown]
  - Venous injury [Unknown]

NARRATIVE: CASE EVENT DATE: 20110511
